FAERS Safety Report 21644298 (Version 1)
Quarter: 2022Q4

REPORT INFORMATION
  Report Type: Report from Study
  Country: US (occurrence: US)
  Receive Date: 20221125
  Receipt Date: 20221125
  Transmission Date: 20230112
  Serious: No
  Sender: FDA-Public Use
  Company Number: US-ABBVIE-4167174

PATIENT
  Sex: Female

DRUGS (3)
  1. HUMIRA [Suspect]
     Active Substance: ADALIMUMAB
     Indication: Uveitis
     Dosage: 40 MILLIGRAM?DAY 8
     Route: 058
     Dates: start: 20210909, end: 20210909
  2. HUMIRA [Suspect]
     Active Substance: ADALIMUMAB
     Dosage: 40 MILLIGRAM
     Route: 058
  3. HUMIRA [Suspect]
     Active Substance: ADALIMUMAB

REACTIONS (6)
  - Photophobia [Unknown]
  - Vision blurred [Unknown]
  - Vitreous floaters [Unknown]
  - Eye irritation [Unknown]
  - Eye pain [Unknown]
  - Eye allergy [Unknown]
